FAERS Safety Report 8814644 (Version 2)
Quarter: 2012Q4

REPORT INFORMATION
  Report Type: 
  Country: JP (occurrence: JP)
  Receive Date: 20120928
  Receipt Date: 20121019
  Transmission Date: 20130627
  Serious: Yes (Hospitalization)
  Sender: FDA-Public Use
  Company Number: JP-BAYER-2012-101256

PATIENT
  Age: 82 Year
  Sex: Male
  Weight: 55 kg

DRUGS (15)
  1. BAYASPIRIN [Suspect]
     Indication: ARTERIAL STENOSIS
     Dosage: Daily dose 100 mg
     Route: 048
     Dates: start: 20120509, end: 20120530
  2. PLAVIX [Interacting]
     Indication: ARTERIAL STENOSIS
     Dosage: Daily dose 75 mg
     Route: 048
     Dates: start: 20120509, end: 20120530
  3. HEPARIN SODIUM [Interacting]
     Dosage: Daily dose 5 ml (5000 units)
     Dates: start: 20120529, end: 20120529
  4. ANESTHETICS, GENERAL [Concomitant]
     Indication: STENT PLACEMENT
  5. BUP-4 [Concomitant]
     Indication: BENIGN PROSTATIC HYPERPLASIA
     Dosage: Daily dose 10 mg
     Route: 048
     Dates: start: 20120509
  6. DUTASTERIDE [Concomitant]
     Indication: BENIGN PROSTATIC HYPERPLASIA
     Dosage: Daily dose .5 mg
     Route: 048
     Dates: start: 20120509
  7. FLIVAS [Concomitant]
     Indication: BENIGN PROSTATIC HYPERPLASIA
     Dosage: Daily dose 25 mg
     Route: 048
     Dates: start: 20120509
  8. TAKEPRON [Concomitant]
     Indication: PROPHYLAXIS AGAINST GASTROINTESTINAL ULCER
     Dosage: Daily dose 15 mg
     Route: 048
     Dates: start: 20120509
  9. LIPITOR [Concomitant]
     Indication: HYPERLIPIDAEMIA
     Dosage: Daily dose 10 mg
     Route: 048
     Dates: start: 20120508
  10. AMLODIPINE [Concomitant]
     Indication: HYPERTENSION
     Dosage: Daily dose 5 mg
     Route: 048
  11. RANITIDINE [Concomitant]
     Indication: ABDOMINAL PAIN UPPER
     Dosage: UNK
     Route: 041
     Dates: start: 20120529
  12. GASTER [Concomitant]
     Indication: ABDOMINAL PAIN UPPER
     Dosage: UNK
     Route: 042
     Dates: start: 20120529
  13. PRIMPERAN [Concomitant]
     Indication: NAUSEA
     Dosage: UNK
     Route: 042
     Dates: start: 20120529
  14. PRIMPERAN [Concomitant]
     Indication: VOMITING
  15. PRIMPERAN [Concomitant]
     Indication: ABDOMINAL PAIN UPPER

REACTIONS (1)
  - Shock haemorrhagic [Recovered/Resolved]
